FAERS Safety Report 4417358-X (Version None)
Quarter: 2004Q3

REPORT INFORMATION
  Report Type: 
  Country: None (occurrence: None)
  Receive Date: 20040802
  Receipt Date: 20040720
  Transmission Date: 20050211
  Serious: Yes (Other)
  Sender: FDA-Public Use
  Company Number: 2004049239

PATIENT
  Sex: Male
  Weight: 83.9154 kg

DRUGS (7)
  1. LIPITOR [Suspect]
     Indication: BLOOD CHOLESTEROL INCREASED
     Dosage: 10 MG (10 MG, 1 IN 1 D)
     Dates: end: 20040101
  2. ARTHROTEC [Suspect]
     Indication: ILL-DEFINED DISORDER
  3. METOPROLOL (METOPROLOL) [Concomitant]
  4. CANDESARTAN CILEXETIL (CANDESARTAN CILEXETIL) [Concomitant]
  5. FOLIC ACID [Concomitant]
  6. LANSOPRAZOLE [Concomitant]
  7. IBUPROFEN [Concomitant]

REACTIONS (10)
  - ASTHENIA [None]
  - BODY HEIGHT DECREASED [None]
  - DEEP VEIN THROMBOSIS [None]
  - KNEE OPERATION [None]
  - MOVEMENT DISORDER [None]
  - MUSCLE CRAMP [None]
  - NAUSEA [None]
  - POST PROCEDURAL COMPLICATION [None]
  - ROTATOR CUFF REPAIR [None]
  - SPINAL FRACTURE [None]
